FAERS Safety Report 4721630-3 (Version None)
Quarter: 2005Q3

REPORT INFORMATION
  Report Type: 
  Country: None (occurrence: None)
  Receive Date: 20050721
  Receipt Date: 20041224
  Transmission Date: 20060218
  Serious: No
  Sender: FDA-Public Use
  Company Number: US-BRISTOL-MYERS SQUIBB COMPANY-12837936

PATIENT
  Age: 42 Year
  Sex: Male
  Weight: 74 kg

DRUGS (3)
  1. COUMADIN [Suspect]
     Indication: PULMONARY EMBOLISM
     Route: 048
     Dates: start: 20040501
  2. STABLON [Concomitant]
  3. AMLODIPINE BESYLATE [Concomitant]

REACTIONS (9)
  - ABDOMINAL PAIN [None]
  - ARTHRALGIA [None]
  - ASTHENIA [None]
  - DYSPNOEA [None]
  - HYPOTRICHOSIS [None]
  - MYALGIA [None]
  - PARAESTHESIA [None]
  - TOOTHACHE [None]
  - TREMOR [None]
